FAERS Safety Report 7381064-2 (Version None)
Quarter: 2011Q1

REPORT INFORMATION
  Report Type: 
  Country: None (occurrence: None)
  Receive Date: 20110329
  Receipt Date: 20100506
  Transmission Date: 20110831
  Serious: No
  Sender: FDA-Public Use
  Company Number: US-AMGEN-KDL410738

PATIENT
  Sex: Female

DRUGS (4)
  1. SENSIPAR [Suspect]
     Indication: HYPERPARATHYROIDISM SECONDARY
     Dosage: 180 MG, QD
  2. ERGOCALCIFEROL [Concomitant]
  3. UNSPECIFIED MEDICATION [Concomitant]
  4. SENSIPAR [Suspect]
     Indication: PRODUCT USED FOR UNKNOWN INDICATION

REACTIONS (1)
  - ENTERAL NUTRITION [None]
